FAERS Safety Report 11555564 (Version 1)
Quarter: 2015Q3

REPORT INFORMATION
  Report Type: Spontaneous
  Country: US (occurrence: US)
  Receive Date: 20150903
  Receipt Date: 20150903
  Transmission Date: 20151125
  Serious: No
  Sender: FDA-Public Use
  Company Number: US-ELI_LILLY_AND_COMPANY-US201011001037

PATIENT
  Age: 68 Year
  Sex: Male

DRUGS (6)
  1. HUMALOG [Suspect]
     Active Substance: INSULIN LISPRO
     Dosage: 10 U, OTHER
     Dates: start: 20090502
  2. HUMALOG [Suspect]
     Active Substance: INSULIN LISPRO
     Indication: TYPE 2 DIABETES MELLITUS
     Dosage: 10 U, EACH MORNING
     Dates: start: 20090502
  3. METFORMIN [Concomitant]
     Active Substance: METFORMIN HYDROCHLORIDE
  4. LANTUS [Concomitant]
     Active Substance: INSULIN GLARGINE
  5. HUMALOG [Suspect]
     Active Substance: INSULIN LISPRO
     Dosage: 10 U, EACH EVENING
     Dates: start: 20090502
  6. BYETTA [Concomitant]
     Active Substance: EXENATIDE

REACTIONS (4)
  - Neuropathy peripheral [Unknown]
  - Cataract [Unknown]
  - Visual acuity reduced [Unknown]
  - Trigger finger [Unknown]

NARRATIVE: CASE EVENT DATE: 20091102
